FAERS Safety Report 24072006 (Version 3)
Quarter: 2025Q4

REPORT INFORMATION
  Report Type: Spontaneous
  Country: EU (occurrence: EU)
  Receive Date: 20240710
  Receipt Date: 20251031
  Transmission Date: 20260117
  Serious: Yes (Other)
  Sender: CELLTRION
  Company Number: EU-CELLTRION INC.-2024DK016164

PATIENT

DRUGS (4)
  1. ADALIMUMAB [Suspect]
     Active Substance: ADALIMUMAB
     Indication: Acne fulminans
     Dosage: 40 MILLIGRAM, Q2WK (ADDITIONAL INFORMATION ON DRUG: DOSAGE1: UNIT=NOT AVAILABLE)
     Route: 058
  2. ADALIMUMAB [Suspect]
     Active Substance: ADALIMUMAB
     Dosage: 40 MILLIGRAM, BIWEEKLY
     Route: 065
  3. ISOTRETINOIN [Suspect]
     Active Substance: ISOTRETINOIN
     Indication: Acne fulminans
     Dosage: 20-40 MILLIGRAM
     Route: 065
  4. PREDNISOLONE [Concomitant]
     Active Substance: PREDNISOLONE
     Indication: Acne fulminans
     Dosage: 25 MILLIGRAM (CONTINUED WITH 20-25 MILLIGRAM)
     Route: 065

REACTIONS (4)
  - Acne fulminans [Recovering/Resolving]
  - Acne [Recovering/Resolving]
  - Seborrhoeic dermatitis [Recovering/Resolving]
  - Off label use [Unknown]
